FAERS Safety Report 7569748-4 (Version None)
Quarter: 2011Q2

REPORT INFORMATION
  Report Type: 
  Country: None (occurrence: None)
  Receive Date: 20110624
  Receipt Date: 20110613
  Transmission Date: 20111010
  Serious: Yes (Other)
  Sender: FDA-Public Use
  Company Number: US-JNJFOC-20110607203

PATIENT
  Sex: Male
  Weight: 86.18 kg

DRUGS (4)
  1. SERTRALINE HYDROCHLORIDE [Concomitant]
     Indication: DEPRESSION
     Dates: start: 20090101
  2. ACYCLOVIR [Concomitant]
     Indication: PYREXIA
     Dates: start: 20100101
  3. ALL OTHER THERAPEUTIC PRODUCTS [Concomitant]
     Indication: HYPERLIPIDAEMIA
     Dates: start: 20090101
  4. STELARA [Suspect]
     Indication: PSORIASIS
     Route: 058
     Dates: start: 20110217

REACTIONS (6)
  - BLOOD IRON INCREASED [None]
  - ARTHRALGIA [None]
  - DRUG INEFFECTIVE [None]
  - GLUCOSE TOLERANCE IMPAIRED [None]
  - PSORIASIS [None]
  - BLOOD TESTOSTERONE DECREASED [None]
